FAERS Safety Report 7771761-9 (Version None)
Quarter: 2011Q3

REPORT INFORMATION
  Report Type: 
  Country: None (occurrence: None)
  Receive Date: 20110921
  Receipt Date: 20110906
  Transmission Date: 20111222
  Serious: Yes (Hospitalization)
  Sender: FDA-Public Use
  Company Number: 2011PV000049

PATIENT
  Age: 69 Year
  Sex: Male

DRUGS (3)
  1. DEPOCYT [Suspect]
     Indication: METASTASES TO MENINGES
     Dosage: INTH
     Route: 037
  2. TEMOZOLOMIDE [Concomitant]
  3. BEVACIZUMAB [Concomitant]

REACTIONS (9)
  - AGITATION [None]
  - GLIOBLASTOMA MULTIFORME [None]
  - NEOPLASM PROGRESSION [None]
  - HEPATIC NECROSIS [None]
  - HEPATIC FAILURE [None]
  - FRONTOTEMPORAL DEMENTIA [None]
  - AGGRESSION [None]
  - DYSARTHRIA [None]
  - METASTASES TO LIVER [None]
